FAERS Safety Report 8914425 (Version 1)
Quarter: 2012Q4

REPORT INFORMATION
  Report Type: 
  Country: FR (occurrence: FR)
  Receive Date: 20121119
  Receipt Date: 20121119
  Transmission Date: 20130627
  Serious: Yes (Hospitalization)
  Sender: FDA-Public Use
  Company Number: FR-PFIZER INC-2012283505

PATIENT
  Age: 73 Year
  Sex: Male

DRUGS (1)
  1. SUTENT [Suspect]
     Indication: GASTROINTESTINAL STROMAL TUMOR
     Dosage: 37.5 UNK, 4weeks out off 6
     Route: 048
     Dates: start: 20110426, end: 20110801

REACTIONS (1)
  - Neuropathy peripheral [Unknown]
